FAERS Safety Report 11516791 (Version 5)
Quarter: 2015Q4

REPORT INFORMATION
  Report Type: Spontaneous
  Country: JP (occurrence: JP)
  Receive Date: 20150917
  Receipt Date: 20151210
  Transmission Date: 20160304
  Serious: Yes (Hospitalization)
  Sender: FDA-Public Use
  Company Number: JP-ASTRAZENECA-2015SE89241

PATIENT
  Age: 24331 Day
  Sex: Female
  Weight: 59 kg

DRUGS (4)
  1. PRAVASTATIN [Suspect]
     Active Substance: PRAVASTATIN\PRAVASTATIN SODIUM
     Indication: HYPERCHOLESTEROLAEMIA
     Route: 048
     Dates: end: 20150821
  2. CRESTOR [Suspect]
     Active Substance: ROSUVASTATIN CALCIUM
     Indication: HYPERCHOLESTEROLAEMIA
     Route: 048
     Dates: start: 20150727, end: 20150815
  3. MOSAPRIDE CITRATE [Suspect]
     Active Substance: MOSAPRIDE CITRATE
     Indication: CHRONIC GASTRITIS
     Route: 048
     Dates: end: 20150908
  4. TAKECAB TABLETS 20MG [Suspect]
     Active Substance: VONOPRAZAN FUMURATE
     Indication: CHRONIC GASTRITIS
     Route: 048
     Dates: end: 20150908

REACTIONS (2)
  - Drug-induced liver injury [Recovered/Resolved]
  - Drug dose omission [Unknown]

NARRATIVE: CASE EVENT DATE: 20150815
